FAERS Safety Report 18423080 (Version 1)
Quarter: 2020Q4

REPORT INFORMATION
  Report Type: Spontaneous
  Country: US (occurrence: US)
  Receive Date: 20201023
  Receipt Date: 20201023
  Transmission Date: 20210114
  Serious: No
  Sender: FDA-Public Use
  Company Number: US-ABBVIE-20K-163-3552987-00

PATIENT
  Age: 21 Year
  Sex: Female
  Weight: 46.31 kg

DRUGS (3)
  1. ELAGOLIX [Suspect]
     Active Substance: ELAGOLIX
     Indication: ENDOMETRIOSIS
     Route: 048
     Dates: start: 20200830
  2. XOPENEX [Concomitant]
     Active Substance: LEVALBUTEROL HYDROCHLORIDE
     Indication: ASTHMA
  3. QVAR [Concomitant]
     Active Substance: BECLOMETHASONE DIPROPIONATE
     Indication: ASTHMA

REACTIONS (4)
  - Musculoskeletal stiffness [Recovering/Resolving]
  - Hot flush [Not Recovered/Not Resolved]
  - Erythema [Not Recovered/Not Resolved]
  - Neck pain [Recovering/Resolving]

NARRATIVE: CASE EVENT DATE: 20200830
